FAERS Safety Report 11805749 (Version 2)
Quarter: 2016Q1

REPORT INFORMATION
  Report Type: Spontaneous
  Country: FR (occurrence: FR)
  Receive Date: 20151207
  Receipt Date: 20160201
  Transmission Date: 20160525
  Serious: Yes (Hospitalization, Other)
  Sender: FDA-Public Use
  Company Number: FR-AMGEN-FRASP2015129121

PATIENT
  Age: 77 Year
  Sex: Male

DRUGS (4)
  1. LEDERFOLIN [Concomitant]
     Active Substance: LEUCOVORIN CALCIUM
     Dosage: UNK
     Route: 042
     Dates: start: 20150826, end: 20151103
  2. VECTIBIX [Suspect]
     Active Substance: PANITUMUMAB
     Indication: RECTAL CANCER
     Dosage: 13,3333 MG (200 MG, 1 IN 15 DAYS)
     Route: 042
     Dates: start: 20150909, end: 20151103
  3. OXALIPLATIN. [Suspect]
     Active Substance: OXALIPLATIN
     Indication: RECTAL CANCER
     Dosage: 9,6667 MG (145 MG, 1 IN 15 DAYS)
     Route: 042
     Dates: start: 20150826, end: 20151103
  4. FLUOROURACIL. [Suspect]
     Active Substance: FLUOROURACIL
     Indication: RECTAL CANCER
     Dosage: 296,6667 MILLIGRAMS (MG) (4450 MG, 1 IN 15 DAYS)
     Route: 042
     Dates: start: 20150826, end: 20151103

REACTIONS (6)
  - Neutropenia [Recovered/Resolved]
  - Diarrhoea [Recovered/Resolved]
  - Pseudomonas infection [Recovered/Resolved]
  - Acute kidney injury [Recovered/Resolved]
  - Hypokalaemia [Recovered/Resolved]
  - Lymphopenia [Recovered/Resolved]
